FAERS Safety Report 4480393-X (Version None)
Quarter: 2004Q4

REPORT INFORMATION
  Report Type: 
  Country: None (occurrence: None)
  Receive Date: 20041018
  Receipt Date: 20041008
  Transmission Date: 20050328
  Serious: Yes (Hospitalization)
  Sender: FDA-Public Use
  Company Number: JP-2004-033263

PATIENT
  Age: 72 Year
  Sex: Female

DRUGS (1)
  1. PROSCOPE 300 (IOPROMIDE) [Suspect]
     Indication: COMPUTERISED TOMOGRAM
     Dosage: 100 ML, INTRAVENOUS
     Route: 042
     Dates: start: 20040930, end: 20040930

REACTIONS (2)
  - ANAPHYLACTIC SHOCK [None]
  - CYANOSIS [None]
